FAERS Safety Report 4505654-7 (Version None)
Quarter: 2004Q4

REPORT INFORMATION
  Report Type: 
  Country: None (occurrence: None)
  Receive Date: 20041119
  Receipt Date: 20030605
  Transmission Date: 20050328
  Serious: Yes (Disabling, Other)
  Sender: FDA-Public Use
  Company Number: US-MERCK-0306USA00866

PATIENT
  Age: 78 Year
  Sex: Male
  Weight: 91 kg

DRUGS (4)
  1. VIOXX [Suspect]
     Indication: BACK PAIN
     Route: 048
     Dates: start: 20010315
  2. VIOXX [Suspect]
     Route: 048
     Dates: start: 20010510
  3. RISPERDAL [Concomitant]
     Route: 065
  4. FLOMAX [Concomitant]
     Route: 065

REACTIONS (26)
  - ABDOMINAL WALL INFECTION [None]
  - ADVERSE EVENT [None]
  - ARTHRALGIA [None]
  - ASTHENIA [None]
  - ASTHMA [None]
  - BENIGN PROSTATIC HYPERPLASIA [None]
  - BRONCHITIS ACUTE [None]
  - CERVICAL VERTEBRAL FRACTURE [None]
  - CONSTIPATION [None]
  - DIFFICULTY IN WALKING [None]
  - DYSPNOEA [None]
  - EYE DISORDER [None]
  - HERPES ZOSTER [None]
  - HYPOAESTHESIA [None]
  - INCONTINENCE [None]
  - JOINT INJURY [None]
  - NAUSEA [None]
  - OEDEMA PERIPHERAL [None]
  - PARANASAL SINUS HYPERSECRETION [None]
  - PERIPHERAL COLDNESS [None]
  - PERSONALITY DISORDER [None]
  - ROAD TRAFFIC ACCIDENT [None]
  - SENILE DEMENTIA [None]
  - SLEEP APNOEA SYNDROME [None]
  - SOMNOLENCE [None]
  - URINARY RETENTION [None]
